FAERS Safety Report 8466213-7 (Version None)
Quarter: 2012Q2

REPORT INFORMATION
  Report Type: 
  Country: None (occurrence: None)
  Receive Date: 20120626
  Receipt Date: 20120621
  Transmission Date: 20120825
  Serious: Yes (Other)
  Sender: FDA-Public Use
  Company Number: US-CELGENEUS-163-21880-12051063

PATIENT
  Sex: Male
  Weight: 92.162 kg

DRUGS (15)
  1. LOSARTAN POTASSIUM AND HYDROCHLOROTHIAZIDE [Concomitant]
     Dosage: 100MG-25MG
     Route: 048
  2. PENTAMIDINE ISETHIONATE [Concomitant]
     Indication: TRANSPLANT
     Route: 055
  3. COUMADIN [Concomitant]
     Dosage: 5 MILLIGRAM
     Route: 048
  4. COUMADIN [Concomitant]
     Dosage: 7.5 MILLIGRAM
     Route: 048
  5. REVLIMID [Suspect]
     Dosage: 10 MILLIGRAM
     Route: 048
     Dates: start: 20120501
  6. NIACIN [Concomitant]
     Dosage: 1000 MILLIGRAM
     Route: 048
  7. COUMADIN [Concomitant]
     Dosage: 10 MILLIGRAM
     Route: 048
  8. IBUPROFEN [Concomitant]
     Indication: PAIN
     Dosage: 400 MILLIGRAM
     Route: 048
  9. ASPIRIN [Concomitant]
     Route: 065
  10. CALCIUM + VITAMIN D [Concomitant]
     Dosage: 600MG-200
     Route: 048
  11. ASCORBIC ACID [Concomitant]
     Dosage: 2000 MILLIGRAM
     Route: 048
  12. LOVENOX [Concomitant]
     Dosage: 90 MILLIGRAM
     Route: 058
  13. REVLIMID [Suspect]
     Indication: MULTIPLE MYELOMA
     Dosage: 15 MILLIGRAM
     Route: 048
     Dates: start: 20111005
  14. AVODART [Concomitant]
     Dosage: .5 MILLIGRAM
     Route: 048
  15. SYNTHROID [Concomitant]
     Dosage: 75 MICROGRAM
     Route: 048

REACTIONS (6)
  - PLATELET COUNT DECREASED [None]
  - WHITE BLOOD CELL COUNT DECREASED [None]
  - DIARRHOEA [None]
  - DYSGEUSIA [None]
  - PANCYTOPENIA [None]
  - HYPERTHYROIDISM [None]
